FAERS Safety Report 24746105 (Version 1)
Quarter: 2024Q4

REPORT INFORMATION
  Report Type: Spontaneous
  Country: FR (occurrence: FR)
  Receive Date: 20241218
  Receipt Date: 20241218
  Transmission Date: 20250115
  Serious: Yes (Hospitalization)
  Sender: AUROBINDO
  Company Number: FR-AFSSAPS-PO2024001326

PATIENT
  Age: 64 Year
  Sex: Male
  Weight: 58.3 kg

DRUGS (3)
  1. QUETIAPINE [Suspect]
     Active Substance: QUETIAPINE
     Indication: Childhood psychosis
     Dosage: 800 MILLIGRAM, ONCE A DAY (QUETIAPINE LP 400MG 1 TAB MORNING AND EVENING)
     Route: 048
  2. VALPROATE SODIUM [Suspect]
     Active Substance: VALPROATE SODIUM
     Indication: Childhood psychosis
     Dosage: 2000 MILLIGRAM, ONCE A DAY
     Route: 048
  3. LEVOMEPROMAZINE [Suspect]
     Active Substance: LEVOMEPROMAZINE
     Indication: Childhood psychosis
     Dosage: 155 MILLIGRAM, ONCE A DAY (NOZINAN 4% ORAL SOLUTION 75MG MORNING, 50MG MIDDAY, 30MG EVENING)
     Route: 048

REACTIONS (1)
  - Osteoporosis [Not Recovered/Not Resolved]

NARRATIVE: CASE EVENT DATE: 20241004
